FAERS Safety Report 24299401 (Version 1)
Quarter: 2024Q3

REPORT INFORMATION
  Report Type: Spontaneous
  Country: US (occurrence: US)
  Receive Date: 20240909
  Receipt Date: 20240909
  Transmission Date: 20241017
  Serious: Yes (Hospitalization)
  Sender: TEIKOKU
  Company Number: US-TSC-TPU-2024-00456

PATIENT
  Sex: Male
  Weight: 119.5 kg

DRUGS (40)
  1. LIDOCAINE 5% [Suspect]
     Active Substance: LIDOCAINE
     Indication: Product used for unknown indication
     Dates: start: 20210322, end: 20210329
  2. LENACAPAVIR [Suspect]
     Active Substance: LENACAPAVIR
     Indication: HIV infection
     Route: 048
     Dates: start: 20200406, end: 20200406
  3. LENACAPAVIR [Suspect]
     Active Substance: LENACAPAVIR
     Route: 048
     Dates: start: 20200407, end: 20200407
  4. LENACAPAVIR [Suspect]
     Active Substance: LENACAPAVIR
     Route: 048
     Dates: start: 20200413, end: 20200413
  5. LENACAPAVIR [Suspect]
     Active Substance: LENACAPAVIR
     Route: 048
     Dates: start: 20200413, end: 20220425
  6. LENACAPAVIR [Suspect]
     Active Substance: LENACAPAVIR
     Dates: start: 20200420
  7. LENACAPAVIR [Suspect]
     Active Substance: LENACAPAVIR
     Dates: start: 20211018, end: 20211018
  8. LENACAPAVIR [Suspect]
     Active Substance: LENACAPAVIR
     Dates: start: 20201026
  9. LENACAPAVIR [Suspect]
     Active Substance: LENACAPAVIR
     Dates: start: 20210421
  10. LENACAPAVIR [Suspect]
     Active Substance: LENACAPAVIR
     Route: 048
  11. ROBAXIN [Suspect]
     Active Substance: METHOCARBAMOL
     Indication: Impaired healing
  12. ROBAXIN [Suspect]
     Active Substance: METHOCARBAMOL
     Indication: Pain
  13. SODIUM CHLORIDE [Suspect]
     Active Substance: SODIUM CHLORIDE
     Indication: Fluid replacement
     Route: 042
     Dates: start: 20210322, end: 20210329
  14. TORADOL [Suspect]
     Active Substance: KETOROLAC TROMETHAMINE
     Indication: Impaired healing
     Route: 048
     Dates: start: 20210322, end: 20210329
  15. BIKTARVY [Concomitant]
     Active Substance: BICTEGRAVIR SODIUM\EMTRICITABINE\TENOFOVIR ALAFENAMIDE FUMARATE
     Dates: start: 20180525
  16. TRAZODONE [Concomitant]
     Active Substance: TRAZODONE HYDROCHLORIDE
     Dates: start: 20190318
  17. DIFLUCAN [Concomitant]
     Active Substance: FLUCONAZOLE
     Dates: start: 20200911
  18. VALTREX [Concomitant]
     Active Substance: VALACYCLOVIR HYDROCHLORIDE
     Dates: start: 201009
  19. LISINOPRIL [Concomitant]
     Active Substance: LISINOPRIL
     Dates: start: 201001
  20. PERCOCET [Concomitant]
     Active Substance: ACETAMINOPHEN\OXYCODONE HYDROCHLORIDE
     Dates: start: 202101, end: 20210802
  21. LYRICA [Concomitant]
     Active Substance: PREGABALIN
     Dates: start: 202101, end: 20210719
  22. LOMOTIL [Concomitant]
     Active Substance: ATROPINE SULFATE\DIPHENOXYLATE HYDROCHLORIDE
     Dates: start: 1999, end: 202104
  23. LOPERAMIDE HYDROCHLORIDE [Concomitant]
     Active Substance: LOPERAMIDE HYDROCHLORIDE
     Dates: start: 20201218, end: 20210329
  24. COREG [Concomitant]
     Active Substance: CARVEDILOL
     Dates: start: 2011
  25. IBALIZUMAB [Concomitant]
     Active Substance: IBALIZUMAB
     Dates: start: 201808
  26. FOSTEMSAVIR [Concomitant]
     Active Substance: FOSTEMSAVIR
     Dates: start: 20201101
  27. DORAVIRINE [Concomitant]
     Active Substance: DORAVIRINE
     Dates: start: 201812
  28. ASPIRIN [Concomitant]
     Active Substance: ASPIRIN
     Dates: start: 20210322
  29. ACETAMINOPHEN [Concomitant]
     Active Substance: ACETAMINOPHEN
     Dates: start: 20201218, end: 20210329
  30. FAT EMULSION NOS [Concomitant]
     Active Substance: EGG PHOSPHOLIPIDS\SAFFLOWER OIL\SOYBEAN OIL
     Dates: start: 20210322, end: 20210329
  31. HYDRALAZINE [Concomitant]
     Active Substance: HYDRALAZINE HYDROCHLORIDE
     Dates: start: 20210322, end: 20210329
  32. KETAMINE [Concomitant]
     Active Substance: KETAMINE
     Dates: start: 20210322, end: 20210329
  33. LIDOCAINE [Concomitant]
     Active Substance: LIDOCAINE
     Dates: start: 20210322, end: 20210329
  34. OXYCODONE [Concomitant]
     Active Substance: OXYCODONE
     Dates: start: 20201218, end: 20210329
  35. ZOFRAN [Concomitant]
     Active Substance: ONDANSETRON HYDROCHLORIDE
     Dates: start: 20201218, end: 20210322
  36. MAALOX ANTACID [Concomitant]
     Active Substance: ALUMINUM HYDROXIDE\DIMETHICONE\MAGNESIUM HYDROXIDE
     Dates: start: 20210118, end: 20210222
  37. MIRALAX [Concomitant]
     Active Substance: POLYETHYLENE GLYCOL 3350
     Dates: start: 20210118, end: 20210222
  38. MORPHINE [Concomitant]
     Active Substance: MORPHINE
     Dates: start: 20210119, end: 20210420
  39. NORCO [Concomitant]
     Active Substance: ACETAMINOPHEN\HYDROCODONE BITARTRATE
     Dates: start: 20201218, end: 20210222
  40. PROCHLORPERAZINE [Concomitant]
     Active Substance: PROCHLORPERAZINE
     Dates: start: 20210322, end: 20210329

REACTIONS (1)
  - Impaired healing [Recovered/Resolved]

NARRATIVE: CASE EVENT DATE: 20210322
